FAERS Safety Report 6788328-1 (Version None)
Quarter: 2010Q2

REPORT INFORMATION
  Report Type: 
  Country: None (occurrence: None)
  Receive Date: 20100623
  Receipt Date: 20080303
  Transmission Date: 20101027
  Serious: No
  Sender: FDA-Public Use
  Company Number: US-PFIZER INC-2008005651

PATIENT
  Sex: Male

DRUGS (5)
  1. GENOTROPIN [Suspect]
     Indication: GROWTH HORMONE DEFICIENCY
     Dosage: QD; 6 DAYS PER WEEK
     Dates: start: 20050101
  2. ZYRTEC [Concomitant]
     Indication: HYPERSENSITIVITY
  3. MONTELUKAST SODIUM [Concomitant]
     Indication: HYPERSENSITIVITY
  4. ALBUTEROL [Concomitant]
  5. VERAMYST [Concomitant]
     Indication: HYPERSENSITIVITY

REACTIONS (3)
  - EDUCATIONAL PROBLEM [None]
  - IRRITABILITY [None]
  - MOOD ALTERED [None]
